FAERS Safety Report 8779324 (Version 1)
Quarter: 2012Q4

REPORT INFORMATION
  Report Type: 
  Country: DK (occurrence: DK)
  Receive Date: 20120911
  Receipt Date: 20120911
  Transmission Date: 20130627
  Serious: Yes (Other)
  Sender: FDA-Public Use
  Company Number: DK-ELI_LILLY_AND_COMPANY-DK201209000514

PATIENT
  Sex: Male

DRUGS (2)
  1. CIALIS [Suspect]
     Dosage: 20 mg, prn
  2. CIALIS [Suspect]
     Dosage: 5 mg, qd

REACTIONS (3)
  - Visual impairment [Recovering/Resolving]
  - Drug ineffective [None]
  - Product substitution issue [None]
